FAERS Safety Report 9184273 (Version 1)
Quarter: 2012Q4

REPORT INFORMATION
  Report Type: 
  Country: US (occurrence: US)
  Receive Date: 20121031
  Receipt Date: 20121031
  Transmission Date: 20130627
  Serious: No
  Sender: FDA-Public Use
  Company Number: US-COVIDIEN/TYCO HEALTHCARE/MALLINCKRODT-T201203216

PATIENT
  Age: 70 Year
  Sex: Male

DRUGS (2)
  1. FENTANYL CITRATE [Suspect]
     Dosage: 400 mcg 6x a day
     Dates: end: 201207
  2. FENTANYL CITRATE [Suspect]
     Dosage: 400 mcg 3x a day
     Dates: start: 201207

REACTIONS (2)
  - Blood testosterone decreased [Recovering/Resolving]
  - Pain [Not Recovered/Not Resolved]
